FAERS Safety Report 6501737-0 (Version None)
Quarter: 2009Q4

REPORT INFORMATION
  Report Type: 
  Country: None (occurrence: None)
  Receive Date: 20091127
  Receipt Date: 20081226
  Transmission Date: 20100525
  Serious: Yes (Other)
  Sender: FDA-Public Use
  Company Number: WAES 0812USA04682

PATIENT
  Age: 59 Year
  Sex: Female

DRUGS (4)
  1. FOSAMAX [Suspect]
     Indication: OSTEOPOROSIS
     Dosage: 70 MG/PO; 10 MG/DAILY/PO; 70 MG/WKY/PO
     Route: 048
     Dates: start: 20010426, end: 20050916
  2. FOSAMAX [Suspect]
     Indication: OSTEOPOROSIS
     Dosage: 70 MG/PO; 10 MG/DAILY/PO; 70 MG/WKY/PO
     Route: 048
     Dates: start: 19981001, end: 20051101
  3. FOSAMAX [Suspect]
     Indication: OSTEOPOROSIS
     Dosage: 70 MG/PO; 10 MG/DAILY/PO; 70 MG/WKY/PO
     Route: 048
     Dates: start: 20000120
  4. COUMADIN [Concomitant]

REACTIONS (13)
  - INCREASED TENDENCY TO BRUISE [None]
  - ORAL DISORDER [None]
  - ORAL PAIN [None]
  - ORAL TORUS [None]
  - OSTEONECROSIS [None]
  - PAIN IN JAW [None]
  - PERIODONTITIS [None]
  - RASH [None]
  - RESORPTION BONE INCREASED [None]
  - TOOTH ABSCESS [None]
  - TOOTH DISORDER [None]
  - UPPER LIMB FRACTURE [None]
  - URTICARIA [None]
